FAERS Safety Report 8370454-7 (Version None)
Quarter: 2012Q2

REPORT INFORMATION
  Report Type: 
  Country: None (occurrence: None)
  Receive Date: 20120518
  Receipt Date: 20120509
  Transmission Date: 20120825
  Serious: Yes (Hospitalization)
  Sender: FDA-Public Use
  Company Number: JP-INCYTE CORPORATION-2012IN000678

PATIENT
  Sex: Male
  Weight: 164 kg

DRUGS (6)
  1. EXJADE [Concomitant]
  2. INC424 [Suspect]
     Indication: MYELOFIBROSIS
     Dosage: 20 MG, BID
     Route: 048
     Dates: start: 20120316, end: 20120415
  3. INC424 [Suspect]
     Dosage: 15 MG, BID
     Route: 048
     Dates: start: 20120416
  4. NORVASC [Concomitant]
  5. ENALAPRIL MALEATE [Concomitant]
  6. ALLOPURINOL [Concomitant]

REACTIONS (4)
  - CELLULITIS [None]
  - ACUTE FEBRILE NEUTROPHILIC DERMATOSIS [None]
  - CONTUSION [None]
  - FALL [None]
